FAERS Safety Report 19504568 (Version 1)
Quarter: 2021Q3

REPORT INFORMATION
  Report Type: Spontaneous
  Country: JP (occurrence: JP)
  Receive Date: 20210708
  Receipt Date: 20210708
  Transmission Date: 20211014
  Serious: Yes (Death, Other)
  Sender: FDA-Public Use
  Company Number: JP-ROCHE-2865483

PATIENT
  Age: 81 Year
  Sex: Female
  Weight: 46.5 kg

DRUGS (3)
  1. KADCYLA [Suspect]
     Active Substance: ADO-TRASTUZUMAB EMTANSINE
     Indication: BREAST CANCER
     Route: 041
     Dates: start: 20140326, end: 20150820
  2. METHYCOBAL [Concomitant]
     Active Substance: METHYLCOBALAMIN
     Route: 065
  3. LASIX [Concomitant]
     Active Substance: FUROSEMIDE

REACTIONS (5)
  - Hepatic cyst [Unknown]
  - Hepatitis B core antibody positive [Unknown]
  - Antinuclear antibody positive [Unknown]
  - Disease progression [Fatal]
  - Nodular regenerative hyperplasia [Unknown]

NARRATIVE: CASE EVENT DATE: 20151006
